FAERS Safety Report 20552718 (Version 1)
Quarter: 2022Q1

REPORT INFORMATION
  Report Type: Spontaneous
  Country: US (occurrence: US)
  Receive Date: 20220304
  Receipt Date: 20220304
  Transmission Date: 20220424
  Serious: Yes (Hospitalization)
  Sender: FDA-Public Use
  Company Number: US-MYLANLABS-2022M1016623

PATIENT
  Age: 74 Year
  Sex: Female

DRUGS (4)
  1. CHLORTHALIDONE [Interacting]
     Active Substance: CHLORTHALIDONE
     Indication: Hypertension
     Dosage: 50 MILLIGRAM, TWO EXTRA DOSES
     Route: 065
  2. AMLODIPINE\OLMESARTAN [Interacting]
     Active Substance: AMLODIPINE\OLMESARTAN
     Indication: Hypertension
     Dosage: UNK UNK, QD
     Route: 065
  3. BERBERINE [Interacting]
     Active Substance: BERBERINE
     Indication: Nutritional supplementation
     Dosage: UNK
     Route: 048
  4. DIETARY SUPPLEMENT\HERBALS [Interacting]
     Active Substance: DIETARY SUPPLEMENT\HERBALS
     Indication: Nutritional supplementation
     Dosage: UNK
     Route: 048

REACTIONS (5)
  - Ventricular extrasystoles [Recovering/Resolving]
  - Hypertension [Unknown]
  - Drug interaction [Recovering/Resolving]
  - Hypokalaemia [Recovering/Resolving]
  - Overdose [Recovering/Resolving]
